FAERS Safety Report 18197104 (Version 1)
Quarter: 2020Q3

REPORT INFORMATION
  Report Type: Spontaneous
  Country: US (occurrence: US)
  Receive Date: 20200826
  Receipt Date: 20200826
  Transmission Date: 20201103
  Serious: Yes (Other)
  Sender: FDA-Public Use
  Company Number: None

PATIENT
  Age: 58 Year
  Sex: Female

DRUGS (1)
  1. ICY HOT MEDICATED NO MESS APPLICATOR [Suspect]
     Active Substance: MENTHOL
     Indication: MYALGIA
     Dosage: ?          QUANTITY:2.5 OUNCE(S);?
     Route: 061
     Dates: start: 20200815, end: 20200815

REACTIONS (3)
  - Skin burning sensation [None]
  - Application site burn [None]
  - Chemical burn [None]

NARRATIVE: CASE EVENT DATE: 20200815
